FAERS Safety Report 8234901-3 (Version None)
Quarter: 2012Q1

REPORT INFORMATION
  Report Type: 
  Country: None (occurrence: None)
  Receive Date: 20120326
  Receipt Date: 20120321
  Transmission Date: 20120608
  Serious: No
  Sender: FDA-Public Use
  Company Number: US-PFIZER INC-2012074767

PATIENT
  Sex: Male
  Weight: 81.633 kg

DRUGS (4)
  1. ZMAX [Suspect]
     Indication: HEADACHE
     Dosage: 2G, ONCE
     Route: 048
     Dates: start: 20120224, end: 20120224
  2. ZMAX [Suspect]
     Indication: INFLUENZA
  3. ZMAX [Suspect]
     Indication: PHARYNGITIS
  4. ZMAX [Suspect]
     Indication: PYREXIA

REACTIONS (1)
  - TINNITUS [None]
